FAERS Safety Report 7641717-5 (Version None)
Quarter: 2011Q3

REPORT INFORMATION
  Report Type: 
  Country: None (occurrence: None)
  Receive Date: 20110728
  Receipt Date: 20110715
  Transmission Date: 20111222
  Serious: Yes (Hospitalization)
  Sender: FDA-Public Use
  Company Number: JP-GENENTECH-318037

PATIENT
  Sex: Male
  Weight: 42 kg

DRUGS (11)
  1. OMALIZUMAB [Suspect]
     Dosage: 375 MG, UNKNOWN
     Route: 058
     Dates: start: 20110425
  2. SINGULAIR [Concomitant]
     Indication: PRODUCT USED FOR UNKNOWN INDICATION
  3. OMALIZUMAB [Suspect]
     Dosage: 375 MG, UNKNOWN
     Route: 058
     Dates: start: 20110704
  4. OMALIZUMAB [Suspect]
     Dosage: 375 MG, UNKNOWN
     Route: 058
  5. OMALIZUMAB [Suspect]
     Dosage: 375 MG, UNKNOWN
     Route: 058
  6. OMALIZUMAB [Suspect]
     Dosage: 375 MG, UNKNOWN
     Route: 058
     Dates: start: 20110411
  7. FLUTICASONE PROPIONATE [Concomitant]
     Indication: PRODUCT USED FOR UNKNOWN INDICATION
  8. HOKUNALIN [Concomitant]
     Indication: PRODUCT USED FOR UNKNOWN INDICATION
  9. CONCOMITANT DRUG [Concomitant]
     Indication: PRODUCT USED FOR UNKNOWN INDICATION
  10. OMALIZUMAB [Suspect]
     Dosage: 375 MG, UNKNOWN
     Route: 058
     Dates: start: 20110523
  11. OMALIZUMAB [Suspect]
     Indication: ASTHMA
     Dosage: 375 MG, UNKNOWN
     Route: 058
     Dates: start: 20110228

REACTIONS (3)
  - ASTHMA [None]
  - VIRAL UPPER RESPIRATORY TRACT INFECTION [None]
  - CONDITION AGGRAVATED [None]
